FAERS Safety Report 8576341-3 (Version None)
Quarter: 2012Q3

REPORT INFORMATION
  Report Type: 
  Country: None (occurrence: None)
  Receive Date: 20120807
  Receipt Date: 20120801
  Transmission Date: 20120928
  Serious: Yes (Death, Other)
  Sender: FDA-Public Use
  Company Number: US-PFIZER INC-2012187686

PATIENT
  Age: 47 Year
  Sex: Male
  Weight: 81.633 kg

DRUGS (4)
  1. XANAX [Concomitant]
     Indication: ANXIETY
     Dosage: UNK
  2. NEURONTIN [Suspect]
     Dosage: UNK, 3X/DAY
     Route: 048
     Dates: start: 20070101, end: 20070101
  3. MORPHINE [Concomitant]
     Indication: DYSPNOEA
     Dosage: 50 MG, AS NEEDED
  4. GABAPENTIN [Suspect]
     Dosage: UNK
     Dates: start: 20070101

REACTIONS (3)
  - DEATH [None]
  - DRUG HYPERSENSITIVITY [None]
  - DYSKINESIA [None]
